FAERS Safety Report 26120679 (Version 1)
Quarter: 2025Q4

REPORT INFORMATION
  Report Type: Report from Study
  Country: US (occurrence: US)
  Receive Date: 20251204
  Receipt Date: 20251204
  Transmission Date: 20260117
  Serious: Yes (Other)
  Sender: ABBVIE
  Company Number: US-ABBVIE-6571471

PATIENT
  Age: 74 Year
  Sex: Female

DRUGS (1)
  1. VYALEV [Suspect]
     Active Substance: FOSCARBIDOPA\FOSLEVODOPA
     Indication: Parkinson^s disease
     Route: 058
     Dates: start: 20251029

REACTIONS (7)
  - Injection site reaction [Recovering/Resolving]
  - On and off phenomenon [Not Recovered/Not Resolved]
  - Therapeutic product effect incomplete [Unknown]
  - Endodontic procedure [Recovering/Resolving]
  - Device issue [Unknown]
  - Toothache [Unknown]
  - Surgical failure [Recovering/Resolving]

NARRATIVE: CASE EVENT DATE: 20250101
